FAERS Safety Report 4793676-0 (Version None)
Quarter: 2005Q4

REPORT INFORMATION
  Report Type: 
  Country: None (occurrence: None)
  Receive Date: 20051011
  Receipt Date: 20051004
  Transmission Date: 20060501
  Serious: Yes (Death, Hospitalization)
  Sender: FDA-Public Use
  Company Number: US-JNJFOC-20050902484

PATIENT
  Age: 43 Year
  Sex: Male

DRUGS (2)
  1. DIPHENHYDRAMINE HCL [Suspect]
     Indication: SUICIDE ATTEMPT
     Dosage: ^15 TABLETS^
     Route: 048
  2. NIFEDIPINE [Suspect]
     Indication: SUICIDE ATTEMPT
     Dosage: ^40 TABLETS^
     Route: 048

REACTIONS (6)
  - ANURIA [None]
  - CARDIAC ARREST [None]
  - COMPLETED SUICIDE [None]
  - CONVULSION [None]
  - INTENTIONAL DRUG MISUSE [None]
  - RESPIRATORY DISORDER [None]
